FAERS Safety Report 12898098 (Version 3)
Quarter: 2017Q2

REPORT INFORMATION
  Report Type: Report from Study
  Country: BR (occurrence: BR)
  Receive Date: 20161031
  Receipt Date: 20170621
  Transmission Date: 20170830
  Serious: Yes (Hospitalization)
  Sender: FDA-Public Use
  Company Number: PHHY2016BR110409

PATIENT
  Sex: Female
  Weight: 79 kg

DRUGS (1)
  1. SANDOSTATIN LAR DEPOT [Suspect]
     Active Substance: OCTREOTIDE ACETATE
     Indication: NEUROENDOCRINE TUMOUR
     Dosage: 30 MG, QMO
     Route: 030
     Dates: start: 201603

REACTIONS (7)
  - Limb discomfort [Unknown]
  - Breast disorder [Unknown]
  - Parathyroid disorder [Unknown]
  - Ultrasound scan abnormal [Unknown]
  - Pulmonary mass [Unknown]
  - Blood test abnormal [Unknown]
  - Fatigue [Recovering/Resolving]
